FAERS Safety Report 4356656-5 (Version None)
Quarter: 2004Q2

REPORT INFORMATION
  Report Type: 
  Country: None (occurrence: None)
  Receive Date: 20040507
  Receipt Date: 20040428
  Transmission Date: 20050107
  Serious: Yes (Hospitalization)
  Sender: FDA-Public Use
  Company Number: 2004211070FR

PATIENT
  Age: 48 Year
  Sex: Female

DRUGS (3)
  1. CAMPTOSAR [Suspect]
     Indication: COLON CANCER METASTATIC
  2. ELVORINE (CALCIUM LEVOFOLINATE) [Suspect]
     Indication: COLON CANCER METASTATIC
  3. FLUOROURACIL [Suspect]
     Indication: COLON CANCER METASTATIC

REACTIONS (2)
  - DERMATITIS ALLERGIC [None]
  - RASH PRURITIC [None]
